FAERS Safety Report 4485255-X (Version None)
Quarter: 2004Q3

REPORT INFORMATION
  Report Type: 
  Country: None (occurrence: None)
  Receive Date: 20040921
  Receipt Date: 20040524
  Transmission Date: 20050211
  Serious: Yes (Hospitalization)
  Sender: FDA-Public Use
  Company Number: 163-20785-04050595

PATIENT
  Age: 70 Year
  Sex: Male

DRUGS (11)
  1. THALOMID [Suspect]
     Indication: MULTIPLE MYELOMA
     Dosage: 50MG-100MG, ALTERNATING DAYS, P.O.; SEE IMAGE
     Route: 048
     Dates: end: 20040419
  2. THALOMID [Suspect]
     Indication: MULTIPLE MYELOMA
     Dosage: 50MG-100MG, ALTERNATING DAYS, P.O.; SEE IMAGE
     Route: 048
     Dates: start: 20020627
  3. NORVASC [Concomitant]
  4. CALCIUM (CALCIUM) (TABLETS) [Concomitant]
  5. ACYCLOVIR [Concomitant]
  6. MULTIVITAMINS (MULTIVITAMINS) (TABLETS) [Concomitant]
  7. SENOKOT [Concomitant]
  8. FOLIC ACID [Concomitant]
  9. PENTAMIDINE (PENTAMIDINE) [Concomitant]
  10. ROCEPHIN [Concomitant]
  11. AZITHROMYCIN [Concomitant]

REACTIONS (5)
  - HUMAN EHRLICHIOSIS [None]
  - LIVER FUNCTION TEST ABNORMAL [None]
  - PANCYTOPENIA [None]
  - PNEUMONIA [None]
  - RENAL FAILURE ACUTE [None]
